FAERS Safety Report 17948692 (Version 1)
Quarter: 2020Q2

REPORT INFORMATION
  Report Type: Spontaneous
  Country: GB (occurrence: GB)
  Receive Date: 20200626
  Receipt Date: 20200626
  Transmission Date: 20200714
  Serious: Yes (Other)
  Sender: FDA-Public Use
  Company Number: GB-ACCORD-187088

PATIENT
  Age: 32 Year
  Sex: Female
  Weight: 116.56 kg

DRUGS (3)
  1. ESCITALOPRAM [Suspect]
     Active Substance: ESCITALOPRAM OXALATE
     Indication: DEPRESSION
     Route: 048
     Dates: start: 20191212
  2. LAMOTRIGINE. [Concomitant]
     Active Substance: LAMOTRIGINE
  3. OLANZAPINE. [Concomitant]
     Active Substance: OLANZAPINE

REACTIONS (2)
  - Menorrhagia [Not Recovered/Not Resolved]
  - Oligomenorrhoea [Unknown]

NARRATIVE: CASE EVENT DATE: 20191215
